FAERS Safety Report 21005117 (Version 2)
Quarter: 2022Q3

REPORT INFORMATION
  Report Type: Report from Study
  Country: US (occurrence: US)
  Receive Date: 20220624
  Receipt Date: 20220915
  Transmission Date: 20221026
  Serious: No
  Sender: FDA-Public Use
  Company Number: US-NOVARTISTESTPH-NVSC2022US144513

PATIENT
  Age: 10 Year
  Sex: Female

DRUGS (1)
  1. ILARIS [Suspect]
     Active Substance: CANAKINUMAB
     Indication: Still^s disease
     Dosage: 150 MG, OTHER (EVERY 30 DAYS)
     Route: 058
     Dates: start: 20131227

REACTIONS (2)
  - Sensitivity to weather change [Unknown]
  - Malaise [Unknown]

NARRATIVE: CASE EVENT DATE: 20211001
